FAERS Safety Report 10904215 (Version 3)
Quarter: 2015Q2

REPORT INFORMATION
  Report Type: Spontaneous
  Country: ZA (occurrence: None)
  Receive Date: 20150306
  Receipt Date: 20150424
  Transmission Date: 20150821
  Serious: Yes (Hospitalization)
  Sender: FDA-Public Use
  Company Number: ZA2015GSK004608

PATIENT
  Age: 14 Year
  Sex: Male
  Weight: 24 kg

DRUGS (3)
  1. ALUVIA (LOPINAVIR + RITONAVFIR) [Suspect]
     Active Substance: LOPINAVIR\RITONAVIR
     Indication: HIV INFECTION
     Route: 048
     Dates: start: 20130426
  2. MARAVIROC (MARAVIROC) FILM-COATED TABLET [Suspect]
     Active Substance: MARAVIROC
     Indication: HIV INFECTION
     Route: 048
     Dates: start: 20130426
  3. TRUVADA [Suspect]
     Active Substance: EMTRICITABINE\TENOFOVIR DISOPROXIL FUMARATE
     Indication: HIV INFECTION
     Dosage: 1 TABET
     Route: 048
     Dates: start: 20130426, end: 20150226

REACTIONS (5)
  - Osteopenia [None]
  - Pain in extremity [None]
  - Osteoporosis [None]
  - Hypophosphataemia [None]
  - Blood alkaline phosphatase increased [None]

NARRATIVE: CASE EVENT DATE: 20150226
